FAERS Safety Report 21462353 (Version 4)
Quarter: 2023Q1

REPORT INFORMATION
  Report Type: Report from Study
  Country: US (occurrence: None)
  Receive Date: 20221016
  Receipt Date: 20230124
  Transmission Date: 20230418
  Serious: Yes (Other)
  Sender: FDA-Public Use
  Company Number: US-ROCHE-3199654

PATIENT
  Age: 63 Year
  Sex: Female
  Weight: 82.2 kg

DRUGS (14)
  1. ATEZOLIZUMAB [Suspect]
     Active Substance: ATEZOLIZUMAB
     Indication: Endometrial cancer
     Dosage: IN 250 NORMAL SALINE
     Route: 041
     Dates: start: 20210210, end: 20221012
  2. ATEZOLIZUMAB [Suspect]
     Active Substance: ATEZOLIZUMAB
     Route: 041
     Dates: start: 20220921
  3. BEVACIZUMAB [Suspect]
     Active Substance: BEVACIZUMAB
     Indication: Endometrial cancer
     Route: 042
     Dates: start: 20210210, end: 20220831
  4. BEVACIZUMAB [Suspect]
     Active Substance: BEVACIZUMAB
     Dosage: 1225 MG
     Route: 042
     Dates: start: 20220831
  5. AMLODIPINE [Concomitant]
     Active Substance: AMLODIPINE BESYLATE
     Indication: Hypertension
     Dates: start: 20211020
  6. AMLODIPINE [Concomitant]
     Active Substance: AMLODIPINE BESYLATE
     Route: 048
     Dates: start: 20220824
  7. BACILLUS COAGULANS;INULIN [Concomitant]
     Dates: start: 20200129
  8. BUSPIRONE [Concomitant]
     Active Substance: BUSPIRONE HYDROCHLORIDE
     Dates: start: 20211020
  9. CLONIDINE [Concomitant]
     Active Substance: CLONIDINE
     Dates: start: 202112
  10. DIPHENHYDRAMINE [Concomitant]
     Active Substance: DIPHENHYDRAMINE
     Dosage: ONCE TAKE 1 TAB AT BED TIME, EVENING BEFORE CT SCAN. TAKE 1 TAB IN THE AM, 1 HOUR PRIOR TO CT SCAN,
     Route: 048
     Dates: start: 20201211
  11. TRIAMCINOLONE [Concomitant]
     Active Substance: TRIAMCINOLONE
     Indication: Dermatitis
     Route: 061
     Dates: start: 20210125
  12. TRIAMCINOLONE [Concomitant]
     Active Substance: TRIAMCINOLONE
     Indication: Pruritus
  13. PREDNISONE [Concomitant]
     Active Substance: PREDNISONE
     Dates: start: 20200918
  14. OLMESARTAN [Concomitant]
     Active Substance: OLMESARTAN
     Dates: start: 20210916

REACTIONS (1)
  - Proteinuria [Unknown]

NARRATIVE: CASE EVENT DATE: 20220920
